FAERS Safety Report 6041029-X (Version None)
Quarter: 2009Q1

REPORT INFORMATION
  Report Type: 
  Country: None (occurrence: None)
  Receive Date: 20090116
  Receipt Date: 20080730
  Transmission Date: 20090719
  Serious: No
  Sender: FDA-Public Use
  Company Number: US-BRISTOL-MYERS SQUIBB COMPANY-14282578

PATIENT
  Age: 35 Year
  Sex: Male
  Weight: 86 kg

DRUGS (6)
  1. ABILIFY [Suspect]
     Indication: DEPRESSION
     Dosage: ABILIFY 5MG QD 3-6 MONTHS.INCREASED TO 10 MG DAILY ON 19-JUN-2008.
  2. ABILIFY [Suspect]
     Indication: OBSESSIVE-COMPULSIVE DISORDER
     Dosage: ABILIFY 5MG QD 3-6 MONTHS.INCREASED TO 10 MG DAILY ON 19-JUN-2008.
  3. ATIVAN [Concomitant]
  4. TOPAMAX [Concomitant]
  5. EFFEXOR XR [Concomitant]
  6. LIPITOR [Concomitant]

REACTIONS (3)
  - NAUSEA [None]
  - SOMNOLENCE [None]
  - VOMITING [None]
